FAERS Safety Report 15790468 (Version 1)
Quarter: 2019Q1

REPORT INFORMATION
  Report Type: Spontaneous
  Country: US (occurrence: US)
  Receive Date: 20190104
  Receipt Date: 20190104
  Transmission Date: 20190417
  Serious: Yes (Other)
  Sender: FDA-Public Use
  Company Number: US-AMGEN-USASP2018186535

PATIENT
  Age: 63 Year
  Sex: Female

DRUGS (6)
  1. IBUPROFEN. [Concomitant]
     Active Substance: IBUPROFEN
     Dosage: UNK UNK, AS NECESSARY
  2. METHOTREXATE. [Concomitant]
     Active Substance: METHOTREXATE
     Dosage: UNK
     Dates: end: 2012
  3. DAPSONE. [Suspect]
     Active Substance: DAPSONE
     Indication: PSORIASIS
     Dosage: 50 MG, QD
     Route: 065
  4. USTEKINUMAB [Suspect]
     Active Substance: USTEKINUMAB
     Indication: PRODUCT USED FOR UNKNOWN INDICATION
     Dosage: 45 MG, EVERY THREE MONTHS
     Route: 065
  5. ETANERCEPT [Suspect]
     Active Substance: ETANERCEPT
     Indication: PRODUCT USED FOR UNKNOWN INDICATION
     Dosage: UNK
     Route: 065
     Dates: start: 2008
  6. DAPSONE. [Suspect]
     Active Substance: DAPSONE
     Indication: PSORIATIC ARTHROPATHY

REACTIONS (7)
  - Rash pruritic [Unknown]
  - Psoriatic arthropathy [Unknown]
  - Scleritis [Unknown]
  - Emphysema [Unknown]
  - Urticarial vasculitis [Unknown]
  - Lip swelling [Unknown]
  - Swelling face [Unknown]
